FAERS Safety Report 4949499-2 (Version None)
Quarter: 2006Q1

REPORT INFORMATION
  Report Type: 
  Country: None (occurrence: None)
  Receive Date: 20060321
  Receipt Date: 20060131
  Transmission Date: 20060701
  Serious: Yes (Other)
  Sender: FDA-Public Use
  Company Number: US-NOVOPROD-250515

PATIENT
  Age: 74 Year
  Sex: Female
  Weight: 59 kg

DRUGS (3)
  1. PRANDIN [Suspect]
     Indication: DIABETES MELLITUS NON-INSULIN-DEPENDENT
     Dosage: 1.0-1.5 MG, TID
     Route: 048
     Dates: start: 20041201
  2. ALPHAGAN [Concomitant]
     Indication: GLAUCOMA
     Dosage: UNK, BID
     Route: 031
     Dates: start: 20030101
  3. XALATAN [Concomitant]
     Indication: GLAUCOMA
     Dosage: UNK, QD
     Route: 031
     Dates: start: 20030101

REACTIONS (1)
  - INTRAOCULAR PRESSURE INCREASED [None]
